FAERS Safety Report 6958969-7 (Version None)
Quarter: 2010Q3

REPORT INFORMATION
  Report Type: 
  Country: None (occurrence: None)
  Receive Date: 20100831
  Receipt Date: 20100819
  Transmission Date: 20110219
  Serious: Yes (Other)
  Sender: FDA-Public Use
  Company Number: US-PFIZER INC-2010104946

PATIENT
  Sex: Female
  Weight: 72.562 kg

DRUGS (4)
  1. LYRICA [Suspect]
     Indication: FIBROMYALGIA
     Dosage: UNK
     Route: 048
     Dates: start: 20081001, end: 20080101
  2. METOPROLOL [Concomitant]
     Indication: HYPERTENSION
     Dosage: 50 MG, 1X/DAY
     Route: 048
  3. ENALAPRIL [Concomitant]
     Indication: HYPERTENSION
     Dosage: 20 MG, 1X/DAY
     Route: 048
  4. TRANXENE [Concomitant]
     Indication: NERVOUSNESS
     Dosage: 7.5 MG, 2X/DAY
     Route: 048

REACTIONS (2)
  - BLOOD GLUCOSE FLUCTUATION [None]
  - BLOOD PRESSURE FLUCTUATION [None]
